FAERS Safety Report 5613316-8 (Version None)
Quarter: 2008Q1

REPORT INFORMATION
  Report Type: 
  Country: None (occurrence: None)
  Receive Date: 20080129
  Receipt Date: 20080110
  Transmission Date: 20080703
  Serious: Yes (Death, Life-Threatening, Hospitalization)
  Sender: FDA-Public Use
  Company Number: DSA_31336_2008

PATIENT
  Sex: Female

DRUGS (17)
  1. BI-TILDIEM (BI-TILDIEM - DILTIAZEM HYDROCHLORIDE) [Suspect]
     Indication: DRUG USE FOR UNKNOWN INDICATION
     Dosage: (180 MG QD ORAL)
     Route: 048
     Dates: start: 20050101
  2. VORICONAZOLE (VORICONAZOLE) [Suspect]
     Indication: DRUG USE FOR UNKNOWN INDICATION
     Dosage: (DF ORAL)
     Route: 048
     Dates: start: 20071124
  3. ZOLOFT [Suspect]
     Indication: DRUG USE FOR UNKNOWN INDICATION
     Dosage: (100 MG QD ORAL), (50 MG QD ORAL)
     Route: 048
     Dates: start: 20050101, end: 20071106
  4. ZOLOFT [Suspect]
     Indication: DRUG USE FOR UNKNOWN INDICATION
     Dosage: (100 MG QD ORAL), (50 MG QD ORAL)
     Route: 048
     Dates: start: 20071107
  5. TRACLEER [Suspect]
     Indication: DRUG USE FOR UNKNOWN INDICATION
     Dosage: (125 MG BID ORAL)
     Route: 048
     Dates: start: 20060101
  6. IMUREL [Concomitant]
  7. CORTANCYL [Concomitant]
  8. TRIATEC [Concomitant]
  9. INIPOMP [Concomitant]
  10. IMOVANE [Concomitant]
  11. TARDYFERON B9 [Concomitant]
  12. TAZOCILLINE [Concomitant]
  13. CIFLOX [Concomitant]
  14. FOSCARNET [Concomitant]
  15. TIENAM [Concomitant]
  16. AMIKLIN [Concomitant]
  17. VANCOMYCIN HCL [Concomitant]

REACTIONS (16)
  - ACTIVATED PARTIAL THROMBOPLASTIN TIME PROLONGED [None]
  - ALANINE AMINOTRANSFERASE INCREASED [None]
  - ASPARTATE AMINOTRANSFERASE INCREASED [None]
  - BLOOD ALKALINE PHOSPHATASE INCREASED [None]
  - BLOOD CREATININE DECREASED [None]
  - BLOOD LACTATE DEHYDROGENASE INCREASED [None]
  - BRONCHOPULMONARY ASPERGILLOSIS [None]
  - CHOLESTASIS [None]
  - CYTOMEGALOVIRUS INFECTION [None]
  - DRUG INTERACTION [None]
  - GAMMA-GLUTAMYLTRANSFERASE INCREASED [None]
  - HYPOPHOSPHATAEMIA [None]
  - METABOLIC ACIDOSIS [None]
  - PANCYTOPENIA [None]
  - PROTHROMBIN LEVEL DECREASED [None]
  - PYREXIA [None]
